FAERS Safety Report 20847925 (Version 1)
Quarter: 2022Q2

REPORT INFORMATION
  Report Type: Spontaneous
  Country: LB (occurrence: LB)
  Receive Date: 20220519
  Receipt Date: 20220519
  Transmission Date: 20220721
  Serious: Yes (Hospitalization)
  Sender: FDA-Public Use
  Company Number: LB-STRIDES ARCOLAB LIMITED-2022SP005656

PATIENT
  Age: 50 Year
  Sex: Male

DRUGS (5)
  1. MORPHINE SULFATE [Suspect]
     Active Substance: MORPHINE SULFATE
     Indication: Procedural pain
     Dosage: UNK,(INITIAL DOSAGE UNKNOWN, THEREAFTER TAPERED DOWN)
     Route: 065
  2. MORPHINE SULFATE [Suspect]
     Active Substance: MORPHINE SULFATE
     Dosage: 40 MILLIGRAM PER DAY
     Route: 065
  3. MORPHINE SULFATE [Suspect]
     Active Substance: MORPHINE SULFATE
     Dosage: 65 MILLIGRAM PER DAY (POST-OPERATIVELY VIA A PATIENT-ADMINISTERED ANALGESIA PUMP, TAPERED OFF OVER 8
     Route: 065
  4. FENETHYLLINE HYDROCHLORIDE [Suspect]
     Active Substance: FENETHYLLINE HYDROCHLORIDE
     Indication: Pain
     Dosage: UNK, (30 PILLS)
     Route: 048
  5. TRAMADOL [Suspect]
     Active Substance: TRAMADOL
     Indication: Procedural pain
     Dosage: UNK
     Route: 030

REACTIONS (5)
  - Medication error [Unknown]
  - Intentional product misuse [Unknown]
  - Drug withdrawal syndrome [Recovered/Resolved]
  - Drug use disorder [Recovered/Resolved]
  - Drug dependence [Recovered/Resolved]
